FAERS Safety Report 25930746 (Version 1)
Quarter: 2025Q4

REPORT INFORMATION
  Report Type: Spontaneous
  Country: US (occurrence: None)
  Receive Date: 20251016
  Receipt Date: 20251016
  Transmission Date: 20260118
  Serious: Yes (Hospitalization)
  Sender: FDA-CTU
  Company Number: None

PATIENT
  Sex: Female

DRUGS (1)
  1. MAVENCLAD [Suspect]
     Active Substance: CLADRIBINE
     Indication: Multiple sclerosis
     Dosage: 10 MG DAILY OAL
     Route: 048
     Dates: start: 20250422

REACTIONS (7)
  - Multiple sclerosis [None]
  - Hypoaesthesia oral [None]
  - Hidradenitis [None]
  - Diabetic ketoacidosis [None]
  - Nausea [None]
  - Visual impairment [None]
  - Vomiting [None]
